FAERS Safety Report 14099064 (Version 1)
Quarter: 2017Q4

REPORT INFORMATION
  Report Type: Spontaneous
  Country: IT (occurrence: IT)
  Receive Date: 20171017
  Receipt Date: 20171017
  Transmission Date: 20180321
  Serious: Yes (Other)
  Sender: FDA-Public Use
  Company Number: IT-CORDEN PHARMA LATINA S.P.A.-IT-2017COR000215

PATIENT
  Age: 68 Year
  Sex: Female

DRUGS (4)
  1. CYTARABINE. [Suspect]
     Active Substance: CYTARABINE
     Indication: MANTLE CELL LYMPHOMA
     Dosage: UNK
     Route: 065
  2. MELPHALAN. [Suspect]
     Active Substance: MELPHALAN
     Indication: MANTLE CELL LYMPHOMA
     Dosage: UNK
     Route: 065
  3. ETOPOSIDE. [Suspect]
     Active Substance: ETOPOSIDE
     Indication: MANTLE CELL LYMPHOMA
     Dosage: UNK
     Route: 065
  4. FOTEMUSTINE [Suspect]
     Active Substance: FOTEMUSTINE
     Indication: MANTLE CELL LYMPHOMA
     Dosage: UNK
     Route: 065

REACTIONS (2)
  - Stomatitis [Recovering/Resolving]
  - Malnutrition [Recovering/Resolving]
